FAERS Safety Report 5608922-0 (Version None)
Quarter: 2008Q1

REPORT INFORMATION
  Report Type: 
  Country: None (occurrence: None)
  Receive Date: 20080131
  Receipt Date: 20080124
  Transmission Date: 20080703
  Serious: Yes (Other)
  Sender: FDA-Public Use
  Company Number: DE-WYE-G00945108

PATIENT
  Sex: Female

DRUGS (1)
  1. LEVONORGESTREL + ETHINYL ESTRADIOL [Suspect]
     Indication: ORAL CONTRACEPTION
     Route: 048
     Dates: start: 20070101, end: 20080101

REACTIONS (1)
  - SYSTEMIC LUPUS ERYTHEMATOSUS [None]
